FAERS Safety Report 20211543 (Version 1)
Quarter: 2021Q4

REPORT INFORMATION
  Report Type: Spontaneous
  Country: AR (occurrence: AR)
  Receive Date: 20211221
  Receipt Date: 20211221
  Transmission Date: 20220303
  Serious: Yes (Death, Hospitalization)
  Sender: FDA-Public Use
  Company Number: AR-NOVARTISPH-NVSC2021AR291935

PATIENT
  Age: 77 Year
  Sex: Female

DRUGS (8)
  1. RIBOCICLIB [Suspect]
     Active Substance: RIBOCICLIB
     Indication: Adenocarcinoma
     Dosage: 600 MG, QD (DURING 21 CONSECUTIVE DAYS,EVERY 28 DAYS)
     Route: 065
  2. LETROZOLE [Suspect]
     Active Substance: LETROZOLE
     Indication: Adenocarcinoma
     Dosage: 2.5 MG, QD
     Route: 065
  3. ENALAPRIL [Concomitant]
     Active Substance: ENALAPRIL
     Indication: Hypertension
     Dosage: 10 MG, QD
     Route: 065
  4. ENALAPRIL [Concomitant]
     Active Substance: ENALAPRIL
     Indication: Schizophrenia
  5. ENALAPRIL [Concomitant]
     Active Substance: ENALAPRIL
     Indication: Obesity
  6. RISPERIDONE [Concomitant]
     Active Substance: RISPERIDONE
     Indication: Hypertension
     Dosage: 4 MG, QD
     Route: 065
  7. RISPERIDONE [Concomitant]
     Active Substance: RISPERIDONE
     Indication: Schizophrenia
  8. RISPERIDONE [Concomitant]
     Active Substance: RISPERIDONE
     Indication: Obesity

REACTIONS (5)
  - Death [Fatal]
  - Psychotic disorder [Not Recovered/Not Resolved]
  - Delirium [Not Recovered/Not Resolved]
  - Starvation [Unknown]
  - Psychomotor hyperactivity [Not Recovered/Not Resolved]

NARRATIVE: CASE EVENT DATE: 20210701
